FAERS Safety Report 6731593-7 (Version None)
Quarter: 2010Q2

REPORT INFORMATION
  Report Type: 
  Country: None (occurrence: None)
  Receive Date: 20100519
  Receipt Date: 20100322
  Transmission Date: 20101027
  Serious: Yes (Hospitalization, Other)
  Sender: FDA-Public Use
  Company Number: US-BAYER-200942183NA

PATIENT
  Age: 33 Year
  Sex: Female
  Weight: 96 kg

DRUGS (5)
  1. YAZ [Suspect]
     Indication: CONTRACEPTION
     Route: 048
     Dates: start: 20070307, end: 20090301
  2. FEXOFENADINE [Concomitant]
     Dosage: 24-APR-2007
     Route: 065
  3. TRAZODONE HCL [Concomitant]
     Indication: SLEEP DISORDER THERAPY
     Route: 065
     Dates: start: 20070508
  4. ACETAMINOPHEN [Concomitant]
     Indication: ANALGESIC THERAPY
     Dosage: 325 MG/PM
     Route: 065
     Dates: start: 20071127
  5. MULTI-VITAMIN [Concomitant]
     Route: 065
     Dates: start: 20071122

REACTIONS (4)
  - CHOLECYSTITIS [None]
  - CHOLELITHIASIS [None]
  - GASTROOESOPHAGEAL REFLUX DISEASE [None]
  - PANCREATITIS ACUTE [None]
